FAERS Safety Report 4527379-4 (Version None)
Quarter: 2004Q4

REPORT INFORMATION
  Report Type: 
  Country: None (occurrence: None)
  Receive Date: 20041215
  Receipt Date: 20041206
  Transmission Date: 20050328
  Serious: Yes (Other)
  Sender: FDA-Public Use
  Company Number: US-BRISTOL-MYERS SQUIBB COMPANY-12794061

PATIENT
  Sex: Male

DRUGS (2)
  1. SERZONE [Suspect]
     Indication: DEPRESSION
     Route: 048
     Dates: end: 20010101
  2. TYLENOL W/ CODEINE NO. 3 [Concomitant]

REACTIONS (3)
  - DIZZINESS [None]
  - HEPATIC STEATOSIS [None]
  - HEPATITIS [None]
